FAERS Safety Report 9660893 (Version 2)
Quarter: 2014Q2

REPORT INFORMATION
  Report Type: Spontaneous
  Country: KR (occurrence: KR)
  Receive Date: 20131031
  Receipt Date: 20140403
  Transmission Date: 20141212
  Serious: Yes (Other)
  Sender: FDA-Public Use
  Company Number: KR-ROCHE-1297794

PATIENT
  Age: 78 Year
  Sex: Female

DRUGS (2)
  1. ALTEPLASE [Suspect]
     Indication: PULMONARY EMBOLISM
     Dosage: THERAPY DURATION: 2 HOURS
     Route: 042
  2. HEPARIN [Suspect]
     Indication: PULMONARY EMBOLISM
     Route: 042

REACTIONS (4)
  - Aortic intramural haematoma [Recovered/Resolved]
  - Breast haematoma [Unknown]
  - Subcutaneous haematoma [Unknown]
  - Abdominal pain upper [Unknown]
